FAERS Safety Report 5690294-7 (Version None)
Quarter: 2008Q2

REPORT INFORMATION
  Report Type: 
  Country: None (occurrence: None)
  Receive Date: 20080401
  Receipt Date: 20080319
  Transmission Date: 20081010
  Serious: Yes (Other)
  Sender: FDA-Public Use
  Company Number: JP-AMGEN-US243162

PATIENT
  Sex: Female

DRUGS (12)
  1. ENBREL [Suspect]
     Indication: RHEUMATOID ARTHRITIS
     Route: 058
     Dates: start: 20061130, end: 20070219
  2. PREDONINE [Concomitant]
     Indication: RHEUMATOID ARTHRITIS
     Route: 048
  3. PLETAL [Concomitant]
     Route: 048
  4. PHOSPHATIDYL CHOLINE [Concomitant]
     Route: 048
  5. BAKTAR [Concomitant]
     Route: 048
  6. LASIX [Concomitant]
     Route: 048
  7. DIGOXIN [Concomitant]
     Dosage: 0.0625 MG/DAY
     Route: 048
  8. TAKEPRON [Concomitant]
     Route: 048
  9. LIPITOR [Concomitant]
     Route: 048
  10. PROGRAF [Concomitant]
     Indication: RHEUMATOID ARTHRITIS
     Dosage: 1.5 MG UNSPECIFIED FREQUENCY
     Route: 048
     Dates: start: 20060901, end: 20061101
  11. PROGRAF [Concomitant]
     Dosage: 3 MG UNSPECIFIED FREQUENCY
     Route: 048
     Dates: start: 20061101
  12. BONALON [Concomitant]
     Route: 048

REACTIONS (2)
  - CHEST X-RAY ABNORMAL [None]
  - COMPUTERISED TOMOGRAM ABNORMAL [None]
